FAERS Safety Report 7429385-9 (Version None)
Quarter: 2011Q2

REPORT INFORMATION
  Report Type: 
  Country: None (occurrence: None)
  Receive Date: 20110421
  Receipt Date: 20110419
  Transmission Date: 20111010
  Serious: Yes (Other)
  Sender: FDA-Public Use
  Company Number: TR-PFIZER INC-2011085136

PATIENT

DRUGS (1)
  1. SOMAVERT [Suspect]

REACTIONS (1)
  - HYPOGLYCAEMIA [None]
